FAERS Safety Report 15624844 (Version 1)
Quarter: 2018Q4

REPORT INFORMATION
  Report Type: Spontaneous
  Country: DE (occurrence: DE)
  Receive Date: 20181116
  Receipt Date: 20181116
  Transmission Date: 20190205
  Serious: Yes (Hospitalization)
  Sender: FDA-Public Use
  Company Number: PHHY2018DE153309

PATIENT
  Age: 76 Year
  Sex: Male
  Weight: 100 kg

DRUGS (9)
  1. IMNOVID [Suspect]
     Active Substance: POMALIDOMIDE
     Indication: PLASMA CELL MYELOMA
     Dosage: 4 MG, QD (4 MILLIGRAM)
     Route: 048
     Dates: start: 20150509
  2. ZOMETA [Concomitant]
     Active Substance: ZOLEDRONIC ACID
     Indication: PLASMA CELL MYELOMA
     Dosage: 4 MG, QD (4 MILLIGRAM)
     Route: 041
     Dates: start: 20100203
  3. DEXAMETHASONE. [Suspect]
     Active Substance: DEXAMETHASONE
     Indication: PLASMA CELL MYELOMA
     Dosage: 160 MG, QD (40 MILLIGRAM)
     Route: 065
     Dates: start: 20141007, end: 20150416
  4. PRIVIGEN [Concomitant]
     Active Substance: HUMAN IMMUNOGLOBULIN G
     Indication: SELECTIVE IGG SUBCLASS DEFICIENCY
     Dosage: 20 MG, QD
     Route: 041
     Dates: start: 20130701
  5. BONDRONAT [Concomitant]
     Active Substance: IBANDRONATE SODIUM
     Indication: PLASMA CELL MYELOMA
     Dosage: 6 MG, QMO (4 MILLIGRAM)
     Route: 041
     Dates: start: 20151126
  6. IBUPROFEN. [Concomitant]
     Active Substance: IBUPROFEN
     Indication: PAIN
     Dosage: 600 MG, UNK
     Route: 048
  7. DEXAMETHASONE. [Suspect]
     Active Substance: DEXAMETHASONE
     Dosage: 16 MG, QD (4 MILLIGRAM)
     Route: 065
     Dates: start: 20150918
  8. DEXAMETHASONE. [Suspect]
     Active Substance: DEXAMETHASONE
     Dosage: 80 MG, QD (20 MILLIGRAM)
     Route: 065
     Dates: start: 20150509, end: 20150910
  9. REVLIMID [Suspect]
     Active Substance: LENALIDOMIDE
     Indication: PLASMA CELL MYELOMA
     Dosage: 15 MG, UNK
     Route: 048

REACTIONS (2)
  - Plasma cell leukaemia [Not Recovered/Not Resolved]
  - Sepsis [Recovered/Resolved]

NARRATIVE: CASE EVENT DATE: 20150908
